FAERS Safety Report 11599303 (Version 1)
Quarter: 2015Q3

REPORT INFORMATION
  Report Type: Spontaneous
  Country: US (occurrence: US)
  Receive Date: 20150916
  Receipt Date: 20150916
  Transmission Date: 20151125
  Serious: No
  Sender: FDA-Public Use
  Company Number: US-ELI_LILLY_AND_COMPANY-US200711006396

PATIENT
  Age: 73 Year
  Sex: Female

DRUGS (1)
  1. FORTEO [Suspect]
     Active Substance: TERIPARATIDE
     Indication: OSTEOPOROSIS
     Dates: start: 20071011, end: 20071022

REACTIONS (6)
  - Musculoskeletal discomfort [Unknown]
  - Facial pain [Unknown]
  - Eye pain [Unknown]
  - Laryngitis [Unknown]
  - Pain in jaw [Unknown]
  - Dry eye [Unknown]

NARRATIVE: CASE EVENT DATE: 200711
